FAERS Safety Report 9024467 (Version 6)
Quarter: 2013Q3

REPORT INFORMATION
  Report Type: Spontaneous
  Country: US (occurrence: US)
  Receive Date: 20130121
  Receipt Date: 20130715
  Transmission Date: 20140515
  Serious: Yes (Hospitalization, Other)
  Sender: FDA-Public Use
  Company Number: US-JNJFOC-20130106722

PATIENT
  Age: 42 Year
  Sex: Male
  Weight: 92.08 kg

DRUGS (34)
  1. RISPERDAL [Suspect]
     Indication: PRODUCT USED FOR UNKNOWN INDICATION
     Route: 048
     Dates: start: 20011102
  2. RISPERDAL [Suspect]
     Indication: PRODUCT USED FOR UNKNOWN INDICATION
     Route: 048
     Dates: start: 20010817
  3. RISPERDAL [Suspect]
     Indication: PRODUCT USED FOR UNKNOWN INDICATION
     Route: 048
     Dates: start: 20010817
  4. RISPERDAL [Suspect]
     Indication: PRODUCT USED FOR UNKNOWN INDICATION
     Route: 048
     Dates: start: 19960101
  5. RISPERDAL [Suspect]
     Indication: PRODUCT USED FOR UNKNOWN INDICATION
     Route: 048
     Dates: start: 20090428
  6. RISPERDAL [Suspect]
     Indication: PRODUCT USED FOR UNKNOWN INDICATION
     Route: 048
     Dates: end: 20040101
  7. PARACETAMOL [Concomitant]
     Indication: PAIN
     Route: 048
  8. PARACETAMOL [Concomitant]
     Indication: PAIN
     Dosage: 1 OR 2 TABLETS 4 TIMES A DAY AS NEEDED
     Route: 048
  9. HYDROXYZINE PAMOATE [Concomitant]
     Indication: SLEEP DISORDER
     Route: 065
     Dates: start: 19970101, end: 20040101
  10. CETIRIZINE [Concomitant]
     Indication: PRODUCT USED FOR UNKNOWN INDICATION
     Dosage: EVERY MORNING
     Route: 065
  11. FLUTICASONE [Concomitant]
     Indication: PRODUCT USED FOR UNKNOWN INDICATION
     Dosage: 2 SPARYS TWICE A DAY
     Route: 045
  12. METHOCARBAMOL [Concomitant]
     Indication: MUSCLE SPASMS
     Dosage: 2 TABLETS EVERY 6 HOURS
     Route: 048
  13. NAPHAZOLINE [Concomitant]
     Indication: PRODUCT USED FOR UNKNOWN INDICATION
     Dosage: 0.1% SOLUTION AS NEEDED
     Route: 047
  14. PSEUDOEPHEDRINE [Concomitant]
     Indication: PRODUCT USED FOR UNKNOWN INDICATION
     Route: 048
  15. RANITIDINE HYDROCHLORIDE [Concomitant]
     Indication: GASTRIC DISORDER
     Route: 048
  16. SODIUM CHLORIDE [Concomitant]
     Indication: NASAL IRRIGATION
     Route: 045
  17. ALUMINUM/MAGNESIUM/SIMETHICONE [Concomitant]
     Indication: ABDOMINAL DISCOMFORT
     Route: 065
  18. BACITRACIN [Concomitant]
     Indication: SKIN LESION
     Route: 061
  19. BENZATROPINE [Concomitant]
     Indication: DYSTONIA
     Route: 030
  20. FLUNISOLIDE [Concomitant]
     Indication: MULTIPLE ALLERGIES
     Route: 045
  21. FOLIC ACID [Concomitant]
     Indication: PRODUCT USED FOR UNKNOWN INDICATION
     Route: 048
  22. HALOPERIDOL [Concomitant]
     Indication: PSYCHOTIC DISORDER
     Route: 030
  23. HALOPERIDOL [Concomitant]
     Indication: PSYCHOTIC DISORDER
     Route: 048
  24. HALOPERIDOL [Concomitant]
     Indication: PSYCHOTIC DISORDER
     Route: 048
  25. LORATADINE [Concomitant]
     Indication: PRODUCT USED FOR UNKNOWN INDICATION
     Route: 048
  26. LORAZEPAM [Concomitant]
     Indication: PRODUCT USED FOR UNKNOWN INDICATION
     Dosage: 0.5 TO 1 MG
     Route: 048
  27. MAGNESIUM HYDROXIDE [Concomitant]
     Indication: CONSTIPATION
     Route: 048
  28. PROMETHAZINE [Concomitant]
     Indication: PRODUCT USED FOR UNKNOWN INDICATION
     Dosage: 25 TO 50 MG
     Route: 030
  29. PROMETHAZINE [Concomitant]
     Indication: PRODUCT USED FOR UNKNOWN INDICATION
     Dosage: 25-50 MG
     Route: 048
  30. SELENIUM [Concomitant]
     Indication: PRODUCT USED FOR UNKNOWN INDICATION
     Route: 061
  31. THIAMINE [Concomitant]
     Indication: PRODUCT USED FOR UNKNOWN INDICATION
     Route: 048
  32. NAPROXEN [Concomitant]
     Indication: PAIN
     Route: 048
  33. IBUPROFEN [Concomitant]
     Indication: ARTHRALGIA
     Route: 065
  34. MICONAZOLE [Concomitant]
     Indication: PRODUCT USED FOR UNKNOWN INDICATION
     Route: 061

REACTIONS (9)
  - Withdrawal syndrome [Recovering/Resolving]
  - Cardiac flutter [Recovering/Resolving]
  - Schizophrenia, paranoid type [Recovering/Resolving]
  - Haematochezia [Recovering/Resolving]
  - Therapeutic response increased [Recovering/Resolving]
  - Adverse reaction [Recovering/Resolving]
  - Heart rate increased [Recovering/Resolving]
  - Insomnia [Unknown]
  - Treatment noncompliance [Unknown]
